FAERS Safety Report 9504542 (Version 1)
Quarter: 2013Q1

REPORT INFORMATION
  Report Type: Spontaneous
  Country: US (occurrence: None)
  Receive Date: 20130225
  Receipt Date: 20130225
  Transmission Date: 20140127
  Serious: No
  Sender: FDA-Public Use
  Company Number: 367753

PATIENT
  Age: 57 Year
  Sex: Female

DRUGS (4)
  1. VICTOZA [Suspect]
     Indication: TYPE 2 DIABETES MELLITUS
     Route: 058
     Dates: start: 201212
  2. GLIMEPIRIDE (GLIMEPIRIDE) [Concomitant]
  3. HUMALOG (INSULIN LISPRO) [Concomitant]
  4. LANTUS (INSULIN GLARGINE) [Concomitant]

REACTIONS (8)
  - Somnolence [None]
  - Back pain [None]
  - Fatigue [None]
  - Nervousness [None]
  - Dyspepsia [None]
  - Diarrhoea [None]
  - Headache [None]
  - Nausea [None]
